FAERS Safety Report 5190778-4 (Version None)
Quarter: 2006Q4

REPORT INFORMATION
  Report Type: 
  Country: None (occurrence: None)
  Receive Date: 20061222
  Receipt Date: 20061212
  Transmission Date: 20070319
  Serious: Yes (Other)
  Sender: FDA-Public Use
  Company Number: IT-ELI_LILLY_AND_COMPANY-IT200612002966

PATIENT
  Age: 68 Year
  Sex: Female

DRUGS (12)
  1. FORTEO [Suspect]
     Indication: OSTEOPOROSIS
     Dosage: 20 UG, DAILY (1/D)
     Route: 058
     Dates: start: 20061103
  2. LOSEC [Concomitant]
     Dosage: 10 MG, 2/D
     Route: 048
  3. LEVOTHYROXINE SODIUM [Concomitant]
     Dosage: 125 UG, DAILY (1/D)
     Route: 048
  4. PROPAFENONE HYDROCHLORIDE [Concomitant]
     Dosage: 325 MG, DAILY (1/D)
     Route: 048
  5. ASPIRIN [Concomitant]
     Dosage: 100 MG, DAILY (1/D)
     Route: 048
  6. MODURETIC 5-50 [Concomitant]
     Dosage: 55 MG, DAILY (1/D)
  7. SIMVASTATIN [Concomitant]
     Dosage: 40 MG, 2/W
     Route: 048
  8. CONTRAMAL [Concomitant]
     Dosage: 100 MG, OTHER
     Dates: end: 20061101
  9. EUFANS [Concomitant]
     Dosage: 600 MG, DAILY (1/D)
     Route: 048
     Dates: end: 20060801
  10. ALPRAZOLAM [Concomitant]
     Dosage: 0.5 MG, OTHER
     Route: 048
  11. NIMESULIDE [Concomitant]
     Dosage: 100 MG, OTHER
     Route: 048
  12. TORADOL [Concomitant]
     Dosage: 30 MG, OTHER
     Route: 051

REACTIONS (1)
  - ALOPECIA [None]
